FAERS Safety Report 8795083 (Version 2)
Quarter: 2015Q1

REPORT INFORMATION
  Report Type: Report from Study
  Country: US (occurrence: US)
  Receive Date: 20120918
  Receipt Date: 20150227
  Transmission Date: 20150721
  Serious: Yes (Death, Hospitalization)
  Sender: FDA-Public Use
  Company Number: US-ROCHE-1095474

PATIENT
  Age: 48 Year
  Sex: Male

DRUGS (19)
  1. PAMIDRONATE DISODIUM. [Concomitant]
     Active Substance: PAMIDRONATE DISODIUM
  2. DECADRON [Concomitant]
     Active Substance: DEXAMETHASONE
  3. AVASTIN [Suspect]
     Active Substance: BEVACIZUMAB
     Indication: RENAL CANCER
     Route: 042
     Dates: start: 20050510, end: 20050524
  4. LEVAQUIN [Concomitant]
     Active Substance: LEVOFLOXACIN
     Route: 042
  5. INDOCIN [Concomitant]
     Active Substance: INDOMETHACIN\INDOMETHACIN SODIUM
  6. ALDACTONE (UNITED STATES) [Concomitant]
  7. AVASTIN [Suspect]
     Active Substance: BEVACIZUMAB
     Route: 042
  8. GRANISETRON [Concomitant]
     Active Substance: GRANISETRON
  9. MARINOL (UNITED STATES) [Concomitant]
  10. LORTAB (UNITED STATES) [Concomitant]
  11. NEURONTIN [Concomitant]
     Active Substance: GABAPENTIN
  12. DEXAMETHASONE. [Concomitant]
     Active Substance: DEXAMETHASONE
  13. MYCELEX [Concomitant]
     Active Substance: CLOTRIMAZOLE
     Indication: ORAL CANDIDIASIS
  14. CELEXA (UNITED STATES) [Concomitant]
  15. CYMBALTA [Concomitant]
     Active Substance: DULOXETINE HYDROCHLORIDE
  16. AVASTIN [Suspect]
     Active Substance: BEVACIZUMAB
     Indication: PANCYTOPENIA
     Route: 042
  17. LIPITOR [Concomitant]
     Active Substance: ATORVASTATIN CALCIUM
  18. LISINOPRIL. [Concomitant]
     Active Substance: LISINOPRIL
     Indication: HYPERTENSION
  19. DURAGESIC [Concomitant]
     Active Substance: FENTANYL
     Dosage: PATCH
     Route: 065

REACTIONS (13)
  - Haemoptysis [Unknown]
  - Metastases to lung [Unknown]
  - Chest pain [Unknown]
  - Oedema peripheral [Unknown]
  - Lung infiltration [Unknown]
  - Sensory loss [Unknown]
  - Death [Fatal]
  - Off label use [Unknown]
  - Hypoxia [Unknown]
  - Dyspnoea [Recovered/Resolved]
  - Radiation pneumonitis [Unknown]
  - Abdominal pain [Unknown]
  - Abdominal tenderness [Unknown]

NARRATIVE: CASE EVENT DATE: 20050607
